FAERS Safety Report 13985783 (Version 4)
Quarter: 2021Q3

REPORT INFORMATION
  Report Type: Spontaneous
  Country: BR (occurrence: BR)
  Receive Date: 20170919
  Receipt Date: 20210916
  Transmission Date: 20211014
  Serious: Yes (Other)
  Sender: FDA-Public Use
  Company Number: BR-ROCHE-1991413

PATIENT
  Sex: Female

DRUGS (3)
  1. RIVOTRIL [Suspect]
     Active Substance: CLONAZEPAM
     Indication: HEADACHE
  2. RIVOTRIL [Suspect]
     Active Substance: CLONAZEPAM
     Indication: MIGRAINE
     Route: 065
  3. RIVOTRIL [Suspect]
     Active Substance: CLONAZEPAM
     Indication: ANXIETY
     Dosage: 2.5 MG/ML
     Route: 065
     Dates: start: 2012

REACTIONS (6)
  - Wrong technique in product usage process [Unknown]
  - Off label use [Unknown]
  - Accidental overdose [Unknown]
  - Product delivery mechanism issue [Unknown]
  - Sedation [Unknown]
  - Incorrect dose administered [Unknown]
